FAERS Safety Report 15723274 (Version 1)
Quarter: 2018Q4

REPORT INFORMATION
  Report Type: Spontaneous
  Country: US (occurrence: US)
  Receive Date: 20181130
  Receipt Date: 20181130
  Transmission Date: 20190205
  Serious: No
  Sender: FDA-Public Use
  Company Number: None

PATIENT
  Age: 70 Year
  Sex: Female
  Weight: 49.9 kg

DRUGS (2)
  1. FLECAINIDE ACETATE 100 MG TABLETS [Suspect]
     Active Substance: FLECAINIDE ACETATE
     Indication: VENTRICULAR EXTRASYSTOLES
     Route: 048
  2. FLECAINIDE ACETATE 100 MG TABLETS [Suspect]
     Active Substance: FLECAINIDE ACETATE
     Indication: SUPRAVENTRICULAR EXTRASYSTOLES
     Route: 048

REACTIONS (2)
  - Product quality issue [None]
  - Palpitations [None]

NARRATIVE: CASE EVENT DATE: 20181124
